FAERS Safety Report 15160398 (Version 1)
Quarter: 2018Q3

REPORT INFORMATION
  Report Type: Spontaneous
  Country: US (occurrence: US)
  Receive Date: 20180718
  Receipt Date: 20180718
  Transmission Date: 20181010
  Serious: Yes (Other)
  Sender: FDA-Public Use
  Company Number: US-GLAXOSMITHKLINE-US2018125400

PATIENT
  Age: 65 Year
  Sex: Male

DRUGS (1)
  1. EXCEDRIN EXTRA STRENGTH [Suspect]
     Active Substance: ACETAMINOPHEN\ASPIRIN\CAFFEINE
     Indication: PRODUCT USED FOR UNKNOWN INDICATION

REACTIONS (13)
  - Pain [Unknown]
  - Anger [Unknown]
  - Nervous system disorder [Unknown]
  - Drug dependence [Unknown]
  - Drug administered to patient of inappropriate age [Unknown]
  - Drug ineffective [Unknown]
  - Disability [Unknown]
  - Medication overuse headache [Unknown]
  - Ill-defined disorder [Unknown]
  - Anxiety [Unknown]
  - Emergency care examination [Unknown]
  - Adverse drug reaction [Unknown]
  - Sinusitis [Unknown]
